FAERS Safety Report 14161811 (Version 1)
Quarter: 2017Q4

REPORT INFORMATION
  Report Type: Spontaneous
  Country: US (occurrence: None)
  Receive Date: 20171104
  Receipt Date: 20171104
  Transmission Date: 20180321
  Serious: Yes (Hospitalization)
  Sender: FDA-Public Use
  Company Number: None

PATIENT
  Age: 71 Year
  Sex: Female
  Weight: 84.8 kg

DRUGS (1)
  1. MEMANTINE HYDROCHLORIDE. [Suspect]
     Active Substance: MEMANTINE HYDROCHLORIDE
     Dates: end: 20171029

REACTIONS (5)
  - Pulmonary embolism [None]
  - Fatigue [None]
  - Palpitations [None]
  - Muscular weakness [None]
  - Atrial fibrillation [None]

NARRATIVE: CASE EVENT DATE: 20171026
